FAERS Safety Report 10175784 (Version 2)
Quarter: 2014Q3

REPORT INFORMATION
  Report Type: Spontaneous
  Country: US (occurrence: None)
  Receive Date: 20140425
  Receipt Date: 20140725
  Transmission Date: 20150326
  Serious: No
  Sender: FDA-Public Use
  Company Number: AP356-00560-SPO-US

PATIENT
  Age: 46 Year
  Sex: Female
  Weight: 80 kg

DRUGS (5)
  1. BELVIQ [Suspect]
     Active Substance: LORCASERIN HYDROCHLORIDE
     Indication: WEIGHT DECREASED
     Dosage: 20 MG, 2 IN 1 D, ORAL   03/17/2014 - ONGOING  THERAPY DATES
     Route: 048
     Dates: start: 20140317
  2. THYROID (THYROID) [Concomitant]
  3. PROGESTERONE (PROGESTERONE) [Concomitant]
  4. ESTRADIOL (ESTRADIOL) (GEL) [Concomitant]
     Active Substance: ESTRADIOL
  5. METFORMIN [Concomitant]
     Active Substance: METFORMIN HYDROCHLORIDE

REACTIONS (6)
  - Constipation [None]
  - Headache [None]
  - Vision blurred [None]
  - Dry mouth [None]
  - Dizziness [None]
  - Insomnia [None]

NARRATIVE: CASE EVENT DATE: 20140317
